FAERS Safety Report 7806292-0 (Version None)
Quarter: 2011Q4

REPORT INFORMATION
  Report Type: 
  Country: None (occurrence: None)
  Receive Date: 20111011
  Receipt Date: 20111005
  Transmission Date: 20120403
  Serious: Yes (Hospitalization, Other)
  Sender: FDA-Public Use
  Company Number: HU-PFIZER INC-2011014987

PATIENT
  Age: 56 Year
  Sex: Male
  Weight: 60 kg

DRUGS (12)
  1. MEGESTROL [Concomitant]
     Dosage: UNK
  2. ACCUZIDE [Concomitant]
     Dosage: UNK
  3. PENTOXIFYLLINE [Concomitant]
     Dosage: UNK
  4. NOACID [Concomitant]
     Dosage: UNK
  5. CHINOTAL [Concomitant]
     Dosage: UNK
  6. PENTOSANPOLYSULFAT SP 54 [Concomitant]
     Dosage: UNK
  7. BUPRENORPHINE [Concomitant]
     Dosage: UNK
     Route: 062
  8. ALPRAZOLAM [Concomitant]
     Dosage: UNK
  9. SUTENT [Suspect]
     Indication: METASTATIC RENAL CELL CARCINOMA
     Dosage: 50 MG, 1X/DAY
     Route: 048
     Dates: start: 20100305, end: 20101210
  10. CLOPIDOGREL [Concomitant]
     Dosage: UNK
  11. DICLOFENAC SODIUM [Concomitant]
     Dosage: UNK
  12. NEBIVOLOL [Concomitant]
     Dosage: UNK

REACTIONS (6)
  - PNEUMONIA [None]
  - LEUKOPENIA [None]
  - COUGH [None]
  - DYSPNOEA [None]
  - ANAEMIA [None]
  - CHEST PAIN [None]
